FAERS Safety Report 8276396-X (Version None)
Quarter: 2012Q2

REPORT INFORMATION
  Report Type: 
  Country: None (occurrence: None)
  Receive Date: 20120412
  Receipt Date: 20120405
  Transmission Date: 20120825
  Serious: Yes (Other)
  Sender: FDA-Public Use
  Company Number: US-JNJFOC-20120403237

PATIENT
  Age: 69 Year
  Sex: Female
  Weight: 70.31 kg

DRUGS (12)
  1. LEXAPRO [Concomitant]
     Indication: ANXIETY
     Dosage: STARTED YEARS AGO
     Route: 065
  2. NABUMETONE [Concomitant]
     Indication: ARTHRITIS
     Dosage: STARTED 4 YEARS AGO
     Route: 065
  3. TYLENOL PM EXTRA STRENGTH [Suspect]
     Indication: SLEEP DISORDER THERAPY
     Dosage: STARTED TAKING 22 YEARS AGO; STOPPED TAKING A COUPLE OF YEARS AGO.
     Route: 048
  4. EXTRA STRENGTH TYLENOL [Suspect]
     Route: 048
  5. EXTRA STRENGTH TYLENOL [Suspect]
     Indication: FIBROMYALGIA
     Dosage: 2 EVERY 2-4 HOURS FOR 22 YEARS 8-9 EXTRA STRENGTH TYLENOLS PER DAY TOTAL. D/C A COUPLE YEARS AGO
     Route: 048
  6. ^VITAMINS^ (NOS) [Concomitant]
     Indication: MEDICAL DIET
     Route: 065
  7. EXTRA STRENGTH TYLENOL [Suspect]
     Indication: HEADACHE
     Dosage: STARTED TAKING 2 TABS AS NEEDED ABOUT 6 MONTHS AGO
     Route: 048
  8. AMLODIPINE [Concomitant]
     Indication: HYPERTENSION
     Dosage: STARTED 22 YEARS AGO
     Route: 065
  9. CLONAZEPAM [Concomitant]
     Indication: FIBROMYALGIA
     Dosage: STARTED 22 YEARS AGO
     Route: 065
  10. EXTRA STRENGTH TYLENOL [Suspect]
     Route: 048
  11. OMEPRAZOLE [Concomitant]
     Indication: GASTRIC DISORDER
     Dosage: 2 PER DAY STARTED 4 YEARS AGO
     Route: 065
  12. TYLENOL PM EXTRA STRENGTH [Suspect]
     Indication: FIBROMYALGIA
     Dosage: STARTED TAKING 22 YEARS AGO; STOPPED TAKING A COUPLE OF YEARS AGO.
     Route: 048

REACTIONS (2)
  - HEPATIC STEATOSIS [None]
  - HEADACHE [None]
